FAERS Safety Report 25280091 (Version 1)
Quarter: 2025Q2

REPORT INFORMATION
  Report Type: Spontaneous
  Country: GB (occurrence: GB)
  Receive Date: 20250507
  Receipt Date: 20250507
  Transmission Date: 20250716
  Serious: Yes (Other)
  Sender: PURDUE
  Company Number: GB-PURDUE-USA-2025-0317302

PATIENT
  Sex: Female

DRUGS (1)
  1. BUPRENORPHINE [Suspect]
     Active Substance: BUPRENORPHINE
     Indication: Spinal operation
     Route: 065

REACTIONS (3)
  - Skin burning sensation [Recovered/Resolved]
  - Blister [Recovered/Resolved]
  - Pain of skin [Recovered/Resolved]
